FAERS Safety Report 6946407-X (Version None)
Quarter: 2010Q3

REPORT INFORMATION
  Report Type: 
  Country: None (occurrence: None)
  Receive Date: 20100827
  Receipt Date: 20100816
  Transmission Date: 20110219
  Serious: Yes (Other)
  Sender: FDA-Public Use
  Company Number: US-ELI_LILLY_AND_COMPANY-US201008006409

PATIENT
  Sex: Female

DRUGS (5)
  1. FORTEO [Suspect]
     Dates: start: 20090120
  2. CALCIUM W/VITAMIN D NOS [Concomitant]
  3. FOLIC ACID [Concomitant]
     Dosage: 1 MG, DAILY (1/D)
  4. HYDROCHLOROTHIAZIDE [Concomitant]
     Dosage: 25 MG, DAILY (1/D)
  5. MOBIC [Concomitant]
     Dosage: 7.5 MG, DAILY (1/D)

REACTIONS (2)
  - BREAST CANCER [None]
  - BREAST CANCER IN SITU [None]
